FAERS Safety Report 6815603-4 (Version None)
Quarter: 2010Q3

REPORT INFORMATION
  Report Type: 
  Country: None (occurrence: None)
  Receive Date: 20100702
  Receipt Date: 20100623
  Transmission Date: 20110219
  Serious: Yes (Other)
  Sender: FDA-Public Use
  Company Number: JP-ROCHE-712541

PATIENT
  Age: 68 Year
  Sex: Female

DRUGS (4)
  1. COPEGUS [Suspect]
     Indication: HEPATITIS C
     Route: 048
  2. COPEGUS [Suspect]
     Dosage: NOTE: DOSAGE IS UNCERTAIN
     Route: 048
  3. PEG-INTRON [Suspect]
     Indication: HEPATITIS C
     Route: 058
  4. PEG-INTRON [Suspect]
     Dosage: NOTE: DOSAGE IS UNCERTAIN
     Route: 058

REACTIONS (2)
  - HEPATIC NEOPLASM MALIGNANT [None]
  - TYPE 1 DIABETES MELLITUS [None]
